FAERS Safety Report 15449641 (Version 2)
Quarter: 2019Q1

REPORT INFORMATION
  Report Type: Report from Study
  Country: None (occurrence: US)
  Receive Date: 20181001
  Receipt Date: 20190117
  Transmission Date: 20190417
  Serious: Yes (Hospitalization, Other)
  Sender: FDA-Public Use
  Company Number: US-ABBVIE-18K-163-2501740-00

PATIENT
  Age: 37 Year
  Sex: Female

DRUGS (2)
  1. HUMIRA [Suspect]
     Active Substance: ADALIMUMAB
     Indication: CROHN^S DISEASE
     Route: 058
  2. HUMIRA [Suspect]
     Active Substance: ADALIMUMAB
     Route: 058

REACTIONS (16)
  - Anxiety [Unknown]
  - Large intestinal obstruction [Recovered/Resolved]
  - Colitis [Recovered/Resolved]
  - Obstruction gastric [Unknown]
  - Deep vein thrombosis [Recovered/Resolved]
  - Abdominal pain upper [Unknown]
  - Spinal column stenosis [Unknown]
  - Deep vein thrombosis [Unknown]
  - Drug ineffective [Unknown]
  - Depression [Unknown]
  - Colonic abscess [Unknown]
  - Pulmonary embolism [Recovered/Resolved]
  - Diverticulitis [Unknown]
  - Abdominal adhesions [Recovered/Resolved]
  - Hyperthyroidism [Unknown]
  - Thrombosis [Unknown]

NARRATIVE: CASE EVENT DATE: 2008
